FAERS Safety Report 19759625 (Version 1)
Quarter: 2021Q3

REPORT INFORMATION
  Report Type: Report from Study
  Country: US (occurrence: US)
  Receive Date: 20210829
  Receipt Date: 20210829
  Transmission Date: 20211014
  Serious: Yes (Hospitalization, Other)
  Sender: FDA-Public Use
  Company Number: US-BAUSCH-BL-2021-029051

PATIENT
  Age: 71 Year
  Sex: Female

DRUGS (2)
  1. XIFAXAN [Suspect]
     Active Substance: RIFAXIMIN
     Indication: PRODUCT USED FOR UNKNOWN INDICATION
     Dosage: STARTED ON XIFAXAN 4 OR 5 MONTHS AGO,
     Route: 065
     Dates: start: 2021
  2. XIFAXAN [Suspect]
     Active Substance: RIFAXIMIN
     Dosage: INCREASED THE DOSAGE TO TWO TABLETS A DAY,
     Route: 065
     Dates: start: 202107, end: 20210819

REACTIONS (6)
  - Product prescribing error [Unknown]
  - Ammonia increased [Unknown]
  - Loss of consciousness [Unknown]
  - Inappropriate schedule of product administration [Unknown]
  - Fall [Unknown]
  - Therapy interrupted [Unknown]

NARRATIVE: CASE EVENT DATE: 202107
